FAERS Safety Report 6026324-2 (Version None)
Quarter: 2008Q4

REPORT INFORMATION
  Report Type: 
  Country: None (occurrence: None)
  Receive Date: 20081222
  Receipt Date: 20081117
  Transmission Date: 20090506
  Serious: No
  Sender: FDA-Public Use
  Company Number: US-WYE-H06872508

PATIENT
  Age: 59 Year
  Sex: Male
  Weight: 154.36 kg

DRUGS (19)
  1. PRISTIQ [Suspect]
     Indication: DEPRESSION
     Dosage: 100 MG, ORAL; 50 MG, ORAL
     Route: 048
     Dates: start: 20080901, end: 20080101
  2. PRISTIQ [Suspect]
     Indication: DEPRESSION
     Dosage: 100 MG, ORAL; 50 MG, ORAL
     Route: 048
     Dates: start: 20080101, end: 20081101
  3. ATENOLOL [Concomitant]
  4. CYMBALTA [Concomitant]
  5. WELLBUTRIN [Concomitant]
  6. PROVIGIL [Concomitant]
  7. RITALIN [Concomitant]
  8. VERAPAMIL [Concomitant]
  9. TEMAZEPAM [Concomitant]
  10. FOSINOPRIL SODIUM [Concomitant]
  11. ACTOS [Concomitant]
  12. TRICOR [Concomitant]
  13. NIASPAN [Concomitant]
  14. METFORMIN HCL [Concomitant]
  15. GLIPIZIDE [Concomitant]
  16. LIPITOR [Concomitant]
  17. PRIMIDONE [Concomitant]
  18. XYZAL (LEVOCETIRIZINE) [Concomitant]
  19. CLARITIN [Concomitant]

REACTIONS (1)
  - DRUG EFFECT DECREASED [None]
